FAERS Safety Report 9830403 (Version 2)
Quarter: 2014Q1

REPORT INFORMATION
  Report Type: Report from Study
  Country: CA (occurrence: CA)
  Receive Date: 20140120
  Receipt Date: 20140120
  Transmission Date: 20141002
  Serious: Yes (Hospitalization)
  Sender: FDA-Public Use
  Company Number: CA-JNJFOC-20121013211

PATIENT
  Age: 33 Year
  Sex: Female
  Weight: 67 kg

DRUGS (2)
  1. REMICADE [Suspect]
     Indication: COLITIS ULCERATIVE
     Route: 042
     Dates: start: 201306
  2. REMICADE [Suspect]
     Indication: COLITIS ULCERATIVE
     Dosage: START DATE ^JAN-2017^
     Route: 042
     Dates: end: 201302

REACTIONS (1)
  - Exposure during pregnancy [Recovered/Resolved]
